FAERS Safety Report 4269976-X (Version None)
Quarter: 2004Q1

REPORT INFORMATION
  Report Type: 
  Country: None (occurrence: None)
  Receive Date: 20040113
  Receipt Date: 20040113
  Transmission Date: 20041129
  Serious: Yes (Hospitalization)
  Sender: FDA-Public Use
  Company Number: None

PATIENT
  Age: 75 Year
  Sex: Male

DRUGS (9)
  1. DILTIAZEM [Suspect]
     Indication: HYPERTENSION
     Dosage: 240 MG QD
     Dates: start: 20030106
  2. SERTRALINE HCL [Suspect]
     Indication: DEPRESSION
     Dosage: 100 MG QD
     Dates: start: 20030116
  3. OSCAL [Concomitant]
  4. FOLIC ACID [Concomitant]
  5. HYDROCHLOROTHIAZIDE [Concomitant]
  6. OXYBUTYNIN [Concomitant]
  7. KCL TAB [Concomitant]
  8. PREDNISONE [Concomitant]
  9. VITAMIN E [Concomitant]

REACTIONS (1)
  - DELUSION [None]
